FAERS Safety Report 7461396-X (Version None)
Quarter: 2011Q2

REPORT INFORMATION
  Report Type: 
  Country: None (occurrence: None)
  Receive Date: 20110506
  Receipt Date: 20110425
  Transmission Date: 20111010
  Serious: Yes (Death, Other)
  Sender: FDA-Public Use
  Company Number: US-CELGENEUS-163-21880-11043424

PATIENT
  Sex: Male

DRUGS (11)
  1. FLOMAX [Concomitant]
     Indication: URINARY RETENTION
     Dosage: .4 MILLIGRAM
     Route: 065
  2. LOVASTATIN [Concomitant]
     Dosage: 1/2 TAB
     Route: 065
  3. GLYBURIDE [Concomitant]
     Dosage: 2.5 MILLIGRAM
     Route: 065
  4. REVLIMID [Suspect]
     Indication: MYELOFIBROSIS
     Dosage: 10 MILLIGRAM
     Route: 048
     Dates: start: 20101203, end: 20110126
  5. HYDROCODONE BITARTRATE [Concomitant]
     Indication: PAIN
     Dosage: 5/325G
     Route: 065
  6. RESTORIL [Concomitant]
     Indication: SLEEP DISORDER
     Dosage: 15 MILLIGRAM
     Route: 065
  7. PREDNISONE [Concomitant]
     Dosage: 10 MILLIGRAM
     Route: 065
  8. ZAROXOLYN [Concomitant]
     Indication: FLUID RETENTION
     Dosage: 2.5 MILLIGRAM
     Route: 065
     Dates: start: 20110126
  9. LASIX [Concomitant]
     Indication: FLUID RETENTION
     Dosage: 20 MILLIGRAM
     Route: 065
  10. METFORMIN [Concomitant]
     Dosage: 1000 MILLIGRAM
     Route: 065
  11. SPIRONOLACTONE [Concomitant]
     Indication: FLUID RETENTION
     Dosage: 50 GRAM
     Route: 065
     Dates: start: 20110119

REACTIONS (2)
  - BONE MARROW FAILURE [None]
  - MYELOFIBROSIS [None]
